FAERS Safety Report 17728855 (Version 2)
Quarter: 2021Q2

REPORT INFORMATION
  Report Type: Spontaneous
  Country: US (occurrence: US)
  Receive Date: 20200430
  Receipt Date: 20210503
  Transmission Date: 20210716
  Serious: No
  Sender: FDA-Public Use
  Company Number: US-ABBVIE-20K-163-3371587-00

PATIENT
  Sex: Female

DRUGS (1)
  1. CREON [Suspect]
     Active Substance: PANCRELIPASE AMYLASE\PANCRELIPASE LIPASE\PANCRELIPASE PROTEASE
     Indication: PRODUCT USED FOR UNKNOWN INDICATION
     Route: 048

REACTIONS (7)
  - Pulmonary function test decreased [Unknown]
  - Arthritis [Unknown]
  - Cystic fibrosis [Unknown]
  - Anxiety [Unknown]
  - Cystic fibrosis related diabetes [Unknown]
  - Unevaluable event [Unknown]
  - Feeling abnormal [Unknown]
